FAERS Safety Report 4275184-9 (Version None)
Quarter: 2004Q1

REPORT INFORMATION
  Report Type: 
  Country: None (occurrence: None)
  Receive Date: 20040116
  Receipt Date: 20040107
  Transmission Date: 20041129
  Serious: Yes (Hospitalization)
  Sender: FDA-Public Use
  Company Number: 2004-01-0112

PATIENT
  Age: 54 Year
  Sex: Male

DRUGS (4)
  1. TEMODAL [Suspect]
     Indication: GLIOBLASTOMA
     Dosage: 350 MG QD ORAL
     Route: 048
     Dates: start: 20031103, end: 20031108
  2. OMEPRAZOLE [Suspect]
     Dosage: 20 MG QD ORAL
     Route: 048
     Dates: start: 20031103
  3. DAOLNIL TABLETS [Suspect]
     Dosage: 15 MG QD ORAL
     Route: 048
  4. PREDNISOLONE [Suspect]
     Dosage: 40 MG QD ORAL
     Route: 048

REACTIONS (6)
  - EPILEPSY [None]
  - HYPERGLYCAEMIA [None]
  - HYPEROSMOLAR STATE [None]
  - HYPONATRAEMIA [None]
  - LOSS OF CONSCIOUSNESS [None]
  - MYOCLONUS [None]
